FAERS Safety Report 10332212 (Version 1)
Quarter: 2014Q3

REPORT INFORMATION
  Report Type: Spontaneous
  Country: GB (occurrence: GB)
  Receive Date: 20140722
  Receipt Date: 20140722
  Transmission Date: 20150326
  Serious: Yes (Hospitalization, Other)
  Sender: FDA-Public Use
  Company Number: GB-BRISTOL-MYERS SQUIBB COMPANY-21214929

PATIENT
  Sex: Female

DRUGS (4)
  1. CLONAZEPAM. [Suspect]
     Active Substance: CLONAZEPAM
     Indication: BIPOLAR DISORDER
     Dosage: DOSE REDUCED FROM 4MG TO 2 MG.
     Route: 048
  2. RISPERIDONE. [Suspect]
     Active Substance: RISPERIDONE
  3. SODIUM VALPROATE [Suspect]
     Active Substance: VALPROATE SODIUM
  4. ABILIFY [Suspect]
     Active Substance: ARIPIPRAZOLE

REACTIONS (6)
  - Delusion [Unknown]
  - Muscle spasms [Unknown]
  - Hallucination [Unknown]
  - Palpitations [Unknown]
  - Mania [Not Recovered/Not Resolved]
  - Psychotic disorder [Not Recovered/Not Resolved]
